FAERS Safety Report 4556814-0 (Version None)
Quarter: 2005Q1

REPORT INFORMATION
  Report Type: 
  Country: None (occurrence: None)
  Receive Date: 20050120
  Receipt Date: 20050111
  Transmission Date: 20050727
  Serious: Yes (Hospitalization)
  Sender: FDA-Public Use
  Company Number: US-GLAXOSMITHKLINE-A0540233A

PATIENT
  Age: 3 Day
  Sex: Female
  Weight: 2.3 kg

DRUGS (2)
  1. TUMS ULTRA TABLETS, TROPICAL ASSORTED FRUITS [Suspect]
     Indication: ACCIDENTAL EXPOSURE
     Dosage: 7TABS PER DAY
     Dates: start: 20050107, end: 20050107
  2. TUMS REGULAR TABLETS, ASSORTED FRUIT [Suspect]
     Indication: ACCIDENTAL EXPOSURE
     Dates: start: 20041201

REACTIONS (4)
  - BLOOD TEST ABNORMAL [None]
  - DRUG EXPOSURE DURING PREGNANCY [None]
  - DYSPNOEA [None]
  - FEEDING PROBLEM IN NEWBORN [None]
